FAERS Safety Report 11402483 (Version 1)
Quarter: 2015Q3

REPORT INFORMATION
  Report Type: Spontaneous
  Country: US (occurrence: US)
  Receive Date: 20150821
  Receipt Date: 20150821
  Transmission Date: 20151125
  Serious: No
  Sender: FDA-Public Use
  Company Number: US-ROCHE-1313029

PATIENT
  Sex: Female

DRUGS (11)
  1. PEGASYS [Suspect]
     Active Substance: PEGINTERFERON ALFA-2A
     Indication: HEPATITIS C
     Route: 058
     Dates: start: 20130715
  2. ASPIRIN. [Concomitant]
     Active Substance: ASPIRIN
     Route: 065
  3. AMITRIPTYLINE [Concomitant]
     Active Substance: AMITRIPTYLINE
     Route: 065
  4. PROCRIT [Concomitant]
     Active Substance: ERYTHROPOIETIN
     Dosage: DOSE: 40000 UNITS.
     Route: 058
     Dates: start: 20131107
  5. NORVASC [Concomitant]
     Active Substance: AMLODIPINE BESYLATE
     Route: 065
  6. DIOVAN [Concomitant]
     Active Substance: VALSARTAN
     Route: 065
  7. MECLIZINE [Concomitant]
     Active Substance: MECLIZINE\MECLIZINE HYDROCHLORIDE
  8. RIBASPHERE RIBAPAK [Concomitant]
     Active Substance: RIBAVIRIN
     Indication: HEPATITIS C
     Route: 048
     Dates: start: 20130715
  9. VICTRELIS [Concomitant]
     Active Substance: BOCEPREVIR
     Indication: HEPATITIS C
     Route: 048
     Dates: start: 20130808
  10. PRAVASTATIN [Concomitant]
     Active Substance: PRAVASTATIN\PRAVASTATIN SODIUM
     Route: 065
  11. XANAX [Concomitant]
     Active Substance: ALPRAZOLAM
     Route: 065

REACTIONS (2)
  - Pruritus [Unknown]
  - Nausea [Not Recovered/Not Resolved]
